FAERS Safety Report 24560927 (Version 1)
Quarter: 2024Q4

REPORT INFORMATION
  Report Type: Report from Study
  Country: JP (occurrence: JP)
  Receive Date: 20241029
  Receipt Date: 20241029
  Transmission Date: 20250114
  Serious: Yes (Other)
  Sender: PFIZER
  Company Number: JP-PFIZER INC-PV202400137462

PATIENT
  Age: 63 Year
  Sex: Male

DRUGS (3)
  1. PACLITAXEL [Suspect]
     Active Substance: PACLITAXEL
     Indication: Lung neoplasm malignant
     Dosage: UNK, CYCLIC
  2. CARBOPLATIN [Suspect]
     Active Substance: CARBOPLATIN
     Indication: Lung neoplasm malignant
     Dosage: UNK, CYCLIC
  3. VORICONAZOLE [Concomitant]
     Active Substance: VORICONAZOLE
     Indication: Bronchopulmonary aspergillosis

REACTIONS (1)
  - Interstitial lung disease [Unknown]
